FAERS Safety Report 10026334 (Version 1)
Quarter: 2014Q1

REPORT INFORMATION
  Report Type: Spontaneous
  Country: US (occurrence: US)
  Receive Date: 20140321
  Receipt Date: 20140321
  Transmission Date: 20141002
  Serious: No
  Sender: FDA-Public Use
  Company Number: US-ALLERGAN-1306447US

PATIENT
  Sex: Female

DRUGS (2)
  1. LUMIGAN [Suspect]
     Indication: GLAUCOMA
     Dosage: UNK
     Route: 047
  2. BETOPTIC-S [Suspect]
     Indication: GLAUCOMA
     Dosage: TWICE A DAY

REACTIONS (3)
  - Intraocular pressure increased [Recovering/Resolving]
  - Ocular hyperaemia [Unknown]
  - Eye pruritus [Unknown]
